FAERS Safety Report 12192923 (Version 1)
Quarter: 2016Q1

REPORT INFORMATION
  Report Type: Report from Study
  Country: US (occurrence: US)
  Receive Date: 20160318
  Receipt Date: 20160318
  Transmission Date: 20160526
  Serious: Yes (Hospitalization)
  Sender: FDA-Public Use
  Company Number: US-009507513-1603USA004152

PATIENT
  Age: 68 Year
  Sex: Male
  Weight: 99.32 kg

DRUGS (3)
  1. FARYDAK [Suspect]
     Active Substance: PANOBINOSTAT
     Indication: PLASMA CELL MYELOMA
     Dosage: 20 MG, ON DAYS 1, 3, 5, 8, 10, 12 OF A CYCLE
     Route: 048
     Dates: start: 20160104, end: 20160115
  2. DEXAMETHASONE. [Suspect]
     Active Substance: DEXAMETHASONE
     Indication: PLASMA CELL MYELOMA
     Dosage: 12 MG, ON DAYS 1, 4, 8, 11 OF A CYCLE
     Route: 048
     Dates: start: 20160104, end: 20160114
  3. VELCADE [Suspect]
     Active Substance: BORTEZOMIB
     Indication: PLASMA CELL MYELOMA
     Dosage: 1.3 MG/M2, ON DAYS 1, 4, 8, 10 OF A CYCLE
     Route: 058
     Dates: start: 20160104, end: 20160114

REACTIONS (6)
  - Malaise [Unknown]
  - Tachycardia [Unknown]
  - Chills [Unknown]
  - Pyrexia [Recovered/Resolved]
  - Hypotension [Unknown]
  - Decreased appetite [Unknown]

NARRATIVE: CASE EVENT DATE: 20160120
